FAERS Safety Report 7812890-0 (Version None)
Quarter: 2011Q4

REPORT INFORMATION
  Report Type: 
  Country: None (occurrence: None)
  Receive Date: 20111013
  Receipt Date: 20110929
  Transmission Date: 20120403
  Serious: No
  Sender: FDA-Public Use
  Company Number: US-B.I. PHARMACEUTICALS,INC./RIDGEFIELD-2011-BP-23188BP

PATIENT
  Sex: Female

DRUGS (4)
  1. LISINOPRIL [Concomitant]
     Indication: HYPERTENSION
  2. LEVOXYL [Concomitant]
     Indication: HYPOTHYROIDISM
  3. SPIRIVA [Suspect]
     Route: 055
     Dates: start: 20110201
  4. ALBUTEROL [Concomitant]
     Indication: ASTHMA

REACTIONS (3)
  - OROPHARYNGEAL PAIN [None]
  - SNEEZING [None]
  - RHINORRHOEA [None]
